FAERS Safety Report 19523561 (Version 1)
Quarter: 2021Q3

REPORT INFORMATION
  Report Type: Spontaneous
  Country: US (occurrence: US)
  Receive Date: 20210712
  Receipt Date: 20210712
  Transmission Date: 20211014
  Serious: No
  Sender: FDA-Public Use
  Company Number: US-PFIZER INC-2021724421

PATIENT

DRUGS (1)
  1. LIOTHYRONINE SODIUM. [Suspect]
     Active Substance: LIOTHYRONINE SODIUM
     Dosage: UNK UNK, 2X/DAY (400 EVERY 3 MONTHS CAUSE I TAKE IT TWICE A DAY.)

REACTIONS (1)
  - Drug intolerance [Unknown]
